FAERS Safety Report 8991270 (Version 1)
Quarter: 2012Q4

REPORT INFORMATION
  Report Type: Report from Study
  Country: US (occurrence: US)
  Receive Date: 20121231
  Receipt Date: 20121231
  Transmission Date: 20130627
  Serious: Yes (Other)
  Sender: FDA-Public Use
  Company Number: US-ROCHE-GNE249255

PATIENT
  Age: 41 Year
  Sex: Male
  Weight: 79.45 kg

DRUGS (5)
  1. OMALIZUMAB [Suspect]
     Indication: ASTHMA
     Dosage: UNK, Q2W
     Route: 058
     Dates: end: 200805
  2. ALBUTEROL [Concomitant]
     Indication: PRODUCT USED FOR UNKNOWN INDICATION
  3. ADVAIR [Concomitant]
     Indication: PRODUCT USED FOR UNKNOWN INDICATION
  4. PREDNISONE [Concomitant]
     Indication: PRODUCT USED FOR UNKNOWN INDICATION
     Dosage: 20 mg, UNK
     Route: 065
  5. SPIRIVA [Concomitant]
     Indication: PRODUCT USED FOR UNKNOWN INDICATION
     Dosage: 120 mg, UNK
     Route: 065

REACTIONS (7)
  - Dyspnoea [Unknown]
  - Dyspepsia [Unknown]
  - Pyrexia [Unknown]
  - Dizziness [Unknown]
  - Epistaxis [Unknown]
  - Musculoskeletal pain [Unknown]
  - Pruritus [Unknown]
